FAERS Safety Report 4524349-7 (Version None)
Quarter: 2004Q4

REPORT INFORMATION
  Report Type: 
  Country: None (occurrence: None)
  Receive Date: 20041119
  Receipt Date: 20040828
  Transmission Date: 20050328
  Serious: Yes (Other)
  Sender: FDA-Public Use
  Company Number: PHEH2004US09370

PATIENT
  Sex: Female

DRUGS (7)
  1. ZELNORM [Suspect]
     Indication: IRRITABLE BOWEL SYNDROME
  2. PAXIL [Suspect]
  3. KLONOPIN [Suspect]
  4. PROTONIX [Suspect]
  5. AVANDIA [Suspect]
  6. ACCUPRIL [Suspect]
  7. HERBAL PREPARATION (NO INGREDIENTS/SUBSTANCES) [Suspect]

REACTIONS (5)
  - ABDOMINAL DISTENSION [None]
  - CONSTIPATION [None]
  - DEPRESSION [None]
  - DRUG INEFFECTIVE [None]
  - PAIN [None]
